FAERS Safety Report 23688134 (Version 1)
Quarter: 2024Q1

REPORT INFORMATION
  Report Type: Spontaneous
  Country: US (occurrence: US)
  Receive Date: 20240329
  Receipt Date: 20240329
  Transmission Date: 20240410
  Serious: No
  Sender: FDA-Public Use
  Company Number: US-SA-SAC20240327000184

PATIENT
  Sex: Male
  Weight: 122.4 kg

DRUGS (12)
  1. DUPIXENT [Suspect]
     Active Substance: DUPILUMAB
     Indication: Dermatitis atopic
     Dosage: 300 MG, QW
     Route: 058
  2. ALBUTEROL SULFATE [Concomitant]
     Active Substance: ALBUTEROL SULFATE
  3. FARXIGA [Concomitant]
     Active Substance: DAPAGLIFLOZIN PROPANEDIOL
  4. FLUTICASONE [Concomitant]
     Active Substance: FLUTICASONE
  5. LISINOPRIL [Concomitant]
     Active Substance: LISINOPRIL
  6. URSODIOL [Concomitant]
     Active Substance: URSODIOL
  7. TAMSULOSIN [Concomitant]
     Active Substance: TAMSULOSIN
  8. PANTOPRAZOLE [Concomitant]
     Active Substance: PANTOPRAZOLE
  9. MYCOPHENOLIC ACID [Concomitant]
     Active Substance: MYCOPHENOLIC ACID
  10. TRELEGY ELLIPTA [Concomitant]
     Active Substance: FLUTICASONE FUROATE\UMECLIDINIUM BROMIDE\VILANTEROL TRIFENATATE
  11. MONTELUKAST [Concomitant]
     Active Substance: MONTELUKAST SODIUM
  12. FERROUS SULFATE [Concomitant]
     Active Substance: FERROUS SULFATE

REACTIONS (4)
  - Paraesthesia [Not Recovered/Not Resolved]
  - Somnolence [Unknown]
  - Genital paraesthesia [Unknown]
  - Inappropriate schedule of product administration [Unknown]
